FAERS Safety Report 8887863 (Version 1)
Quarter: 2012Q4

REPORT INFORMATION
  Report Type: Spontaneous
  Country: US (occurrence: None)
  Receive Date: 20121101
  Receipt Date: 20121101
  Transmission Date: 20130627
  Serious: No
  Sender: FDA-Public Use
  Company Number: None

PATIENT
  Age: 79 Year
  Sex: Male
  Weight: 69.9 kg

DRUGS (1)
  1. MECLIZINE [Suspect]
     Indication: DIZZINESS
     Route: 048
     Dates: start: 20120803, end: 20120807

REACTIONS (3)
  - Dysarthria [None]
  - Dizziness [None]
  - Vertigo [None]
